FAERS Safety Report 10728419 (Version 1)
Quarter: 2015Q1

REPORT INFORMATION
  Report Type: Spontaneous
  Country: PE (occurrence: PE)
  Receive Date: 20150122
  Receipt Date: 20150122
  Transmission Date: 20150721
  Serious: Yes (Other)
  Sender: FDA-Public Use
  Company Number: PE-009507513-1501PER007384

PATIENT
  Sex: Male

DRUGS (1)
  1. NASONEX [Suspect]
     Active Substance: MOMETASONE FUROATE

REACTIONS (1)
  - Surgery [Unknown]
